FAERS Safety Report 8021122-2 (Version None)
Quarter: 2012Q1

REPORT INFORMATION
  Report Type: 
  Country: None (occurrence: None)
  Receive Date: 20120104
  Receipt Date: 20111228
  Transmission Date: 20120608
  Serious: Yes (Other)
  Sender: FDA-Public Use
  Company Number: US-PFIZER INC-2011300606

PATIENT
  Sex: Male
  Weight: 10.431 kg

DRUGS (2)
  1. XYNTHA [Suspect]
     Dosage: UNK
     Dates: end: 20111001
  2. XYNTHA [Suspect]
     Indication: HAEMOPHILIA
     Dosage: 250 IU, WEEKLY
     Dates: end: 20111001

REACTIONS (1)
  - FACTOR VIII INHIBITION [None]
